FAERS Safety Report 10157965 (Version 1)
Quarter: 2014Q2

REPORT INFORMATION
  Report Type: Spontaneous
  Country: PE (occurrence: PE)
  Receive Date: 20140507
  Receipt Date: 20140507
  Transmission Date: 20141212
  Serious: Yes (Death, Other)
  Sender: FDA-Public Use
  Company Number: PE-GLAXOSMITHKLINE-A1072176A

PATIENT
  Age: 81 Year
  Sex: Male

DRUGS (1)
  1. SERETIDE [Suspect]
     Indication: PULMONARY FIBROSIS
     Dosage: 4PUFF PER DAY
     Route: 065
     Dates: start: 20130516

REACTIONS (1)
  - Cardiac arrest [Fatal]
